FAERS Safety Report 5580390-7 (Version None)
Quarter: 2008Q1

REPORT INFORMATION
  Report Type: 
  Country: None (occurrence: None)
  Receive Date: 20080103
  Receipt Date: 20071228
  Transmission Date: 20080703
  Serious: Yes (Hospitalization)
  Sender: FDA-Public Use
  Company Number: US-GENENTECH-252664

PATIENT
  Sex: Female
  Weight: 77 kg

DRUGS (6)
  1. RITUXAN [Suspect]
     Indication: ANTIPHOSPHOLIPID SYNDROME
     Dosage: 375 MG/M2, 1/WEEK
     Route: 042
     Dates: start: 20071114
  2. PREDNISONE TAB [Concomitant]
     Indication: DRUG USE FOR UNKNOWN INDICATION
  3. POTASSIUM CHLORIDE [Concomitant]
     Indication: DRUG USE FOR UNKNOWN INDICATION
  4. PREVACID [Concomitant]
     Indication: DRUG USE FOR UNKNOWN INDICATION
  5. ALDACTONE [Concomitant]
     Indication: DRUG USE FOR UNKNOWN INDICATION
  6. LASIX [Concomitant]
     Indication: DRUG USE FOR UNKNOWN INDICATION

REACTIONS (1)
  - SERUM SICKNESS [None]
